FAERS Safety Report 10557291 (Version 3)
Quarter: 2014Q4

REPORT INFORMATION
  Report Type: Spontaneous
  Country: US (occurrence: US)
  Receive Date: 20141031
  Receipt Date: 20141119
  Transmission Date: 20150529
  Serious: Yes (Other)
  Sender: FDA-Public Use
  Company Number: US-PFIZER INC-2014300844

PATIENT
  Age: 47 Year
  Sex: Female
  Weight: 140.5 kg

DRUGS (25)
  1. METHOTREXATE SODIUM. [Concomitant]
     Active Substance: METHOTREXATE SODIUM
     Dosage: 2.5 UNK, UNK(TAKE 8 TABLET EVERY WEEK)
     Route: 048
     Dates: start: 20140917
  2. PLAQUENIL [Concomitant]
     Active Substance: HYDROXYCHLOROQUINE SULFATE
     Dosage: 200 MG, 2X/DAY
     Route: 048
     Dates: start: 20140611, end: 20140917
  3. METHOTREXATE SODIUM. [Concomitant]
     Active Substance: METHOTREXATE SODIUM
     Dosage: 2.5 UNK, UNK(TAKE 6 TABLET EVERY WEEK)
     Route: 048
     Dates: start: 20131211, end: 20131211
  4. CELEBREX [Concomitant]
     Active Substance: CELECOXIB
     Dosage: 200 MG, 2X/DAY
     Route: 048
     Dates: start: 20140917
  5. TREXALL [Concomitant]
     Active Substance: METHOTREXATE SODIUM
     Dosage: 6 DF, UNK (6 TABLET BY ORAL ROUTE EVERY WEEK)
     Route: 048
     Dates: start: 20140917
  6. PLAQUENIL [Concomitant]
     Active Substance: HYDROXYCHLOROQUINE SULFATE
     Dosage: 200 MG, 2X/DAY
     Route: 048
     Dates: start: 20140917
  7. XELJANZ [Suspect]
     Active Substance: TOFACITINIB CITRATE
     Indication: RHEUMATOID ARTHRITIS
     Dosage: 5 MG, 2X/DAY
     Route: 048
     Dates: start: 20130911, end: 20140917
  8. ENBREL [Concomitant]
     Active Substance: ETANERCEPT
     Dosage: 25 MG, WEEKLY (2 MILLILITER ; USING 2 SEPERATE INJECTION SITE)
     Route: 058
     Dates: start: 20130430, end: 20131211
  9. PREDNISONE. [Concomitant]
     Active Substance: PREDNISONE
     Dosage: 5 MG, 1X/DAY
     Route: 048
     Dates: start: 20130821
  10. CELEBREX [Concomitant]
     Active Substance: CELECOXIB
     Dosage: 200 MG, 2X/DAY
     Route: 048
     Dates: start: 20140204
  11. CELEBREX [Concomitant]
     Active Substance: CELECOXIB
     Dosage: 200 MG, 2X/DAY
     Route: 048
     Dates: start: 20130806
  12. CELEBREX [Concomitant]
     Active Substance: CELECOXIB
     Dosage: 200 MG, 2X/DAY
     Route: 048
     Dates: start: 20140717, end: 20140917
  13. FOLIC ACID. [Concomitant]
     Active Substance: FOLIC ACID
     Indication: RHEUMATOID ARTHRITIS
     Dosage: 1 MG, DAILY
     Route: 048
     Dates: start: 20131002
  14. LORTAB [Concomitant]
     Active Substance: ACETAMINOPHEN\HYDROCODONE BITARTRATE
     Dosage: 1 DF, AS NEEDED (10 MG-500 MG TABLET, EVERY 4 HOURS AS NEEDED FOR PAIN)
     Route: 048
     Dates: start: 20131002
  15. RITUXAN [Concomitant]
     Active Substance: RITUXIMAB
     Dosage: UNK(10 MG/ML,INTRAVENOUS ROUTE ONCE)
     Route: 042
     Dates: start: 20140917
  16. METHOTREXATE SODIUM. [Concomitant]
     Active Substance: METHOTREXATE SODIUM
     Indication: RHEUMATOID ARTHRITIS
     Dosage: 2.5 MG, UNK (6 TABLET BY ORAL ROUTE EVERY WEEK)
     Route: 048
     Dates: start: 20130806, end: 20131211
  17. METHOTREXATE SODIUM. [Concomitant]
     Active Substance: METHOTREXATE SODIUM
     Dosage: UNK
  18. TREXALL [Concomitant]
     Active Substance: METHOTREXATE SODIUM
     Dosage: 6 DF, UNK (6 TABLET BY ORAL ROUTE EVERY WEEK)
     Route: 048
     Dates: start: 20140514
  19. LORTAB [Concomitant]
     Active Substance: ACETAMINOPHEN\HYDROCODONE BITARTRATE
     Indication: PAIN
     Dosage: 1 DF, 4X/DAY(10 MG-500 MG TABLET, 1 TABLET BY ORAL ROUTE 4 TIMES A DAY)
     Dates: start: 20130821, end: 20131002
  20. METHOTREXATE SODIUM. [Concomitant]
     Active Substance: METHOTREXATE SODIUM
     Dosage: 2.5 UNK, UNK(TAKE 6 TABLET EVERY WEEK)
     Route: 048
     Dates: start: 20140204, end: 20140514
  21. MEDROL [Concomitant]
     Active Substance: METHYLPREDNISOLONE
     Dosage: 4 MG, UNK(AS DIRECTED)
     Route: 048
     Dates: start: 20130806, end: 20131211
  22. FOLIC ACID. [Concomitant]
     Active Substance: FOLIC ACID
     Dosage: 1 MG, DAILY
     Route: 048
     Dates: start: 20140814
  23. HYDROCODONE/ACETAMINOPHEN [Concomitant]
     Active Substance: ACETAMINOPHEN\HYDROCODONE
     Indication: PAIN
     Dosage: 1 DF, AS NEEDED (HYDROCODONE 10 MG-ACETAMINOPHEN 325 MG TAB1 TABLET BY ORAL ROUTE EVERY 4 - 6 HOURS)
     Route: 048
     Dates: start: 20131231
  24. HYDROCODONE/ACETAMINOPHEN [Concomitant]
     Active Substance: ACETAMINOPHEN\HYDROCODONE
     Dosage: 1 DF, AS NEEDED (HYDROCODONE 10 MG-ACETAMINOPHEN 325 MG TAB1 TABLET BY ORAL ROUTE EVERY 4 - 6 HOURS)
     Route: 048
     Dates: start: 20140814
  25. TREXALL [Concomitant]
     Active Substance: METHOTREXATE SODIUM
     Dosage: 6 DF, UNK (6 TABLET BY ORAL ROUTE EVERY WEEK)
     Route: 048
     Dates: start: 20140522, end: 20140917

REACTIONS (14)
  - Nasal congestion [Unknown]
  - Depression [Unknown]
  - Rheumatoid arthritis [Unknown]
  - Staphylococcal infection [Unknown]
  - Balance disorder [Unknown]
  - Weight increased [Unknown]
  - Renal cell carcinoma [Recovered/Resolved]
  - Insomnia [Unknown]
  - Obesity [Unknown]
  - Arthritis bacterial [Recovering/Resolving]
  - Tinnitus [Unknown]
  - Anxiety [Unknown]
  - Condition aggravated [Unknown]
  - Walking aid user [Unknown]

NARRATIVE: CASE EVENT DATE: 20140319
